FAERS Safety Report 21355518 (Version 1)
Quarter: 2022Q3

REPORT INFORMATION
  Report Type: Spontaneous
  Country: US (occurrence: None)
  Receive Date: 20220920
  Receipt Date: 20220920
  Transmission Date: 20221027
  Serious: No
  Sender: FDA-Public Use
  Company Number: None

PATIENT
  Age: 62 Year
  Sex: Male

DRUGS (2)
  1. VILAZODONE [Suspect]
     Active Substance: VILAZODONE
  2. VILAZODONE [Suspect]
     Active Substance: VILAZODONE

REACTIONS (3)
  - Product substitution issue [None]
  - Drug ineffective [None]
  - Therapy change [None]

NARRATIVE: CASE EVENT DATE: 20220920
